FAERS Safety Report 20056210 (Version 2)
Quarter: 2021Q4

REPORT INFORMATION
  Report Type: Spontaneous
  Country: US (occurrence: US)
  Receive Date: 20211111
  Receipt Date: 20211118
  Transmission Date: 20220303
  Serious: No
  Sender: FDA-Public Use
  Company Number: US-VIIV HEALTHCARE LIMITED-US2021225520

PATIENT
  Age: 61 Year
  Sex: Female

DRUGS (2)
  1. VOCABRIA [Suspect]
     Active Substance: CABOTEGRAVIR SODIUM
     Indication: HIV infection
     Dosage: 1 DF, 1D (1 TABLET, ONCE PER DAY WITH EDURANT)
     Route: 048
     Dates: start: 20210927, end: 20211101
  2. EDURANT [Suspect]
     Active Substance: RILPIVIRINE HYDROCHLORIDE
     Indication: HIV infection
     Dosage: 1 DF, QD, 25 MG
     Route: 048
     Dates: start: 20210927, end: 20211101

REACTIONS (4)
  - Pruritus [Unknown]
  - Oropharyngeal pain [Unknown]
  - Dysphagia [Unknown]
  - Mood swings [Unknown]

NARRATIVE: CASE EVENT DATE: 20210927
